FAERS Safety Report 5932916-9 (Version None)
Quarter: 2008Q4

REPORT INFORMATION
  Report Type: 
  Country: None (occurrence: None)
  Receive Date: 20081023
  Receipt Date: 20060822
  Transmission Date: 20090506
  Serious: Yes (Death, Other)
  Sender: FDA-Public Use
  Company Number: 2006AL002578

PATIENT
  Age: 58 Year
  Sex: Male

DRUGS (4)
  1. ISOSORBIDE MONONITRATE [Suspect]
     Indication: ANGINA PECTORIS
     Dosage: 10 MG; QD; PO
     Route: 048
     Dates: start: 20060807
  2. TADALAFIL [Concomitant]
  3. ATROVENT AEROSOL [Concomitant]
  4. FORADIL AEROSOL [Concomitant]

REACTIONS (5)
  - CORONARY ARTERY OCCLUSION [None]
  - DRUG INTERACTION [None]
  - MYOCARDIAL INFARCTION [None]
  - SYNCOPE [None]
  - VENTRICULAR FIBRILLATION [None]
